FAERS Safety Report 5190426-3 (Version None)
Quarter: 2006Q4

REPORT INFORMATION
  Report Type: 
  Country: None (occurrence: None)
  Receive Date: 20061222
  Receipt Date: 20061213
  Transmission Date: 20070319
  Serious: Yes (Other)
  Sender: FDA-Public Use
  Company Number: US-ELI_LILLY_AND_COMPANY-US200612003173

PATIENT
  Sex: Female

DRUGS (5)
  1. CYMBALTA [Suspect]
     Indication: DEPRESSION
  2. WELLBUTRIN [Concomitant]
  3. SEROQUEL [Concomitant]
  4. THYROXIN [Concomitant]
  5. OPIOIDS [Concomitant]
     Dosage: UNK, AS NEEDED

REACTIONS (1)
  - HEPATIC FAILURE [None]
